FAERS Safety Report 7495424-2 (Version None)
Quarter: 2011Q2

REPORT INFORMATION
  Report Type: 
  Country: None (occurrence: None)
  Receive Date: 20110523
  Receipt Date: 20110324
  Transmission Date: 20111010
  Serious: No
  Sender: FDA-Public Use
  Company Number: US-TYCO HEALTHCARE/MALLINCKRODT-T201100651

PATIENT
  Age: 64 Year
  Sex: Female

DRUGS (7)
  1. PERCOCET [Concomitant]
     Dosage: 10/325, 4 XDAILY
     Route: 048
  2. EFFEXOR [Concomitant]
  3. ABILIFY [Concomitant]
  4. AMBIEN [Concomitant]
  5. HORMONES NOS [Concomitant]
  6. NEXIUM [Concomitant]
  7. FENTANYL-100 [Suspect]

REACTIONS (2)
  - ERYTHEMA [None]
  - DRUG EFFECT DECREASED [None]
